FAERS Safety Report 8785059 (Version 2)
Quarter: 2012Q4

REPORT INFORMATION
  Report Type: 
  Country: US (occurrence: US)
  Receive Date: 20120914
  Receipt Date: 20121023
  Transmission Date: 20130627
  Serious: No
  Sender: FDA-Public Use
  Company Number: US-009507513-1209USA004434

PATIENT
  Sex: Male
  Weight: 72.11 kg

DRUGS (1)
  1. DULERA [Suspect]
     Indication: ASTHMA
     Dosage: Dulera 100/5, 2 puffs twice a day
     Route: 055
     Dates: start: 201202, end: 201208

REACTIONS (2)
  - Chest pain [Recovered/Resolved]
  - Product taste abnormal [Recovered/Resolved]
